FAERS Safety Report 8251789-5 (Version None)
Quarter: 2012Q2

REPORT INFORMATION
  Report Type: 
  Country: None (occurrence: None)
  Receive Date: 20120402
  Receipt Date: 20120329
  Transmission Date: 20120825
  Serious: Yes (Death, Hospitalization)
  Sender: FDA-Public Use
  Company Number: US-GILEAD-2011-0045611

PATIENT
  Sex: Female

DRUGS (2)
  1. LETAIRIS [Suspect]
     Indication: PULMONARY HYPERTENSION
     Dosage: 5 MG, UNK
     Route: 048
     Dates: start: 20110824, end: 20111014
  2. VENTAVIS [Concomitant]

REACTIONS (4)
  - ORGAN FAILURE [None]
  - RENAL FAILURE [None]
  - RESPIRATORY ARREST [None]
  - CARDIAC FAILURE [None]
